FAERS Safety Report 23638031 (Version 1)
Quarter: 2024Q1

REPORT INFORMATION
  Report Type: Spontaneous
  Country: BR (occurrence: BR)
  Receive Date: 20240315
  Receipt Date: 20240315
  Transmission Date: 20240410
  Serious: Yes (Other)
  Sender: FDA-Public Use
  Company Number: BR-ABBVIE-5676718

PATIENT
  Sex: Female
  Weight: 83 kg

DRUGS (4)
  1. HUMIRA [Suspect]
     Active Substance: ADALIMUMAB
     Indication: Psoriatic arthropathy
     Route: 058
     Dates: end: 202311
  2. HUMIRA [Suspect]
     Active Substance: ADALIMUMAB
     Indication: Ankylosing spondylitis
  3. DULOXETINE HYDROCHLORIDE [Concomitant]
     Active Substance: DULOXETINE HYDROCHLORIDE
     Indication: Pain
     Dosage: 1 TABLET?FORM STRENGTH UNITS:60 MILLIGRAM
  4. Ammy [Concomitant]
     Indication: Contraception
     Dosage: 1 TABLET

REACTIONS (5)
  - Inclusion body myositis [Recovered/Resolved]
  - Crohn^s disease [Unknown]
  - Tremor [Recovered/Resolved]
  - Muscular weakness [Recovered/Resolved]
  - Loss of personal independence in daily activities [Recovered/Resolved]
